FAERS Safety Report 18973052 (Version 1)
Quarter: 2021Q1

REPORT INFORMATION
  Report Type: Spontaneous
  Country: US (occurrence: US)
  Receive Date: 20210305
  Receipt Date: 20210305
  Transmission Date: 20210420
  Serious: No
  Sender: FDA-Public Use
  Company Number: US-GILEAD-2021-0519672

PATIENT
  Age: 56 Year
  Sex: Male

DRUGS (4)
  1. DESCOVY [Suspect]
     Active Substance: EMTRICITABINE\TENOFOVIR ALAFENAMIDE FUMARATE
     Indication: HIV INFECTION
     Dosage: UNK
     Route: 065
  2. TIVICAY [Concomitant]
     Active Substance: DOLUTEGRAVIR SODIUM
  3. STRIBILD [Concomitant]
     Active Substance: COBICISTAT\ELVITEGRAVIR\EMTRICITABINE\TENOFOVIR DISOPROXIL FUMARATE
  4. GENVOYA [Suspect]
     Active Substance: COBICISTAT\ELVITEGRAVIR\EMTRICITABINE\TENOFOVIR ALAFENAMIDE FUMARATE
     Indication: HIV INFECTION
     Dosage: UNK
     Route: 065

REACTIONS (7)
  - Inflammation [Unknown]
  - Plantar fasciitis [Unknown]
  - Fatigue [Unknown]
  - Weight increased [Unknown]
  - Tenosynovitis stenosans [Unknown]
  - Arthritis [Not Recovered/Not Resolved]
  - Depression [Unknown]
